FAERS Safety Report 6260641-6 (Version None)
Quarter: 2009Q3

REPORT INFORMATION
  Report Type: 
  Country: None (occurrence: None)
  Receive Date: 20090706
  Receipt Date: 20090624
  Transmission Date: 20100115
  Serious: Yes (Life-Threatening, Hospitalization, Disabling)
  Sender: FDA-Public Use
  Company Number: 2009AL004248

PATIENT
  Age: 56 Year
  Sex: Female

DRUGS (4)
  1. SERTRALINE HYDROCHLORIDE [Suspect]
     Indication: DEPRESSION
     Dosage: 200 MG; PO
     Route: 048
     Dates: start: 20070521, end: 20090111
  2. LERCANIDIPINE [Concomitant]
  3. TRAMADOL HCL [Concomitant]
  4. LAMOTRIGINE [Concomitant]

REACTIONS (3)
  - PANCREATIC PSEUDOCYST [None]
  - PANCREATITIS NECROTISING [None]
  - TYPE 1 DIABETES MELLITUS [None]
